FAERS Safety Report 7430040-X (Version None)
Quarter: 2011Q2

REPORT INFORMATION
  Report Type: 
  Country: None (occurrence: None)
  Receive Date: 20110419
  Receipt Date: 20110419
  Transmission Date: 20111010
  Serious: Yes (Other)
  Sender: FDA-Public Use
  Company Number: None

PATIENT
  Age: 51 Year
  Sex: Female
  Weight: 83.9154 kg

DRUGS (1)
  1. NIASPAN [Suspect]
     Indication: BLOOD TRIGLYCERIDES INCREASED
     Dosage: 1 TAB EVERY BEDTIME PO
     Route: 048
     Dates: start: 20110401, end: 20110413

REACTIONS (4)
  - SYNCOPE [None]
  - HYPERHIDROSIS [None]
  - HEART RATE [None]
  - FLUSHING [None]
